FAERS Safety Report 7426779-2 (Version None)
Quarter: 2011Q2

REPORT INFORMATION
  Report Type: 
  Country: None (occurrence: None)
  Receive Date: 20110420
  Receipt Date: 20110413
  Transmission Date: 20111010
  Serious: Yes (Other)
  Sender: FDA-Public Use
  Company Number: CA-MERCK-1104USA01992

PATIENT

DRUGS (1)
  1. COSOPT [Suspect]
     Route: 047

REACTIONS (2)
  - TREATMENT NONCOMPLIANCE [None]
  - BURNING SENSATION [None]
